FAERS Safety Report 4266965-6 (Version None)
Quarter: 2004Q1

REPORT INFORMATION
  Report Type: 
  Country: None (occurrence: None)
  Receive Date: 20040107
  Receipt Date: 20031224
  Transmission Date: 20041129
  Serious: Yes (Death, Hospitalization)
  Sender: FDA-Public Use
  Company Number: CIP03003429

PATIENT
  Age: 59 Year
  Sex: Female

DRUGS (8)
  1. BENET (RISEDRONATE SODIUM) TABLET, 2.5 MG [Suspect]
     Indication: OSTEOPOROSIS
     Dosage: 2.5 MG DAILY, ORAL
     Route: 048
     Dates: start: 20031001, end: 20031118
  2. UFT [Concomitant]
  3. KRESTIN (POLYSACCHARIDE-K) [Concomitant]
  4. MUCOSTA (REMAPIMIDE) [Concomitant]
  5. DOMPERIDONE (DOMPERIDONE) [Concomitant]
  6. DEPAS (ETIZOLAM) [Concomitant]
  7. FERROUS CITRATE [Concomitant]
  8. PARULEON (TRIAZOLAM) [Concomitant]

REACTIONS (8)
  - CARBOHYDRATE ANTIGEN 19-9 INCREASED [None]
  - CARCINOEMBRYONIC ANTIGEN INCREASED [None]
  - CONDITION AGGRAVATED [None]
  - DISSEMINATED INTRAVASCULAR COAGULATION [None]
  - GASTRIC CANCER RECURRENT [None]
  - METAMYELOCYTE COUNT INCREASED [None]
  - MYELOCYTE COUNT INCREASED [None]
  - NAUSEA [None]
